FAERS Safety Report 9107003 (Version 2)
Quarter: 2013Q2

REPORT INFORMATION
  Report Type: Spontaneous
  Country: US (occurrence: US)
  Receive Date: 20130221
  Receipt Date: 20130618
  Transmission Date: 20140414
  Serious: Yes (Hospitalization, Other)
  Sender: FDA-Public Use
  Company Number: US-BAYER-2013-021092

PATIENT
  Age: 49 Year
  Sex: Female

DRUGS (9)
  1. GIANVI [Suspect]
  2. YAZ [Suspect]
     Indication: CONTRACEPTION
  3. YASMIN [Suspect]
     Indication: CONTRACEPTION
  4. DIAZEPAM [Concomitant]
     Dosage: 5 MG, UNK
  5. SERTRALINE [Concomitant]
     Dosage: 50 MG, UNK
  6. ZOLPIDEM [Concomitant]
  7. HYDROCODONE [Concomitant]
  8. ACETAMINOPHEN W/HYDROCODONE [Concomitant]
  9. VICODIN [Concomitant]

REACTIONS (2)
  - Deep vein thrombosis [None]
  - Peripheral artery thrombosis [None]
